FAERS Safety Report 5501901-3 (Version None)
Quarter: 2007Q4

REPORT INFORMATION
  Report Type: 
  Country: None (occurrence: None)
  Receive Date: 20071030
  Receipt Date: 20071018
  Transmission Date: 20080405
  Serious: Yes (Other)
  Sender: FDA-Public Use
  Company Number: GB-ROCHE-523695

PATIENT
  Age: 57 Year
  Sex: Female

DRUGS (6)
  1. XELODA [Suspect]
     Indication: BREAST CANCER METASTATIC
     Route: 065
     Dates: start: 20070517
  2. XELODA [Suspect]
     Route: 065
  3. DIFLUCAN [Suspect]
     Route: 048
     Dates: start: 20070705
  4. TAXOTERE [Suspect]
     Indication: BREAST CANCER METASTATIC
     Route: 042
     Dates: start: 20070517
  5. LASIX [Concomitant]
     Indication: HYPERTENSION
  6. NEUPOGEN [Concomitant]
     Indication: ARTHRITIS
     Route: 058
     Dates: start: 20070524

REACTIONS (20)
  - ABDOMINAL PAIN [None]
  - DIARRHOEA [None]
  - DROOLING [None]
  - FATIGUE [None]
  - FUNGAL INFECTION [None]
  - HYPOAESTHESIA [None]
  - HYPOTENSION [None]
  - LACRIMATION INCREASED [None]
  - NAUSEA [None]
  - ONYCHOLYSIS [None]
  - PAIN [None]
  - PALMAR-PLANTAR ERYTHRODYSAESTHESIA SYNDROME [None]
  - PYREXIA [None]
  - RASH [None]
  - RHINITIS [None]
  - SKIN EXFOLIATION [None]
  - TONGUE COATED [None]
  - VOMITING [None]
  - VULVOVAGINAL MYCOTIC INFECTION [None]
  - WHITE BLOOD CELL COUNT DECREASED [None]
